FAERS Safety Report 23695783 (Version 1)
Quarter: 2024Q2

REPORT INFORMATION
  Report Type: Spontaneous
  Country: US (occurrence: US)
  Receive Date: 20240402
  Receipt Date: 20240402
  Transmission Date: 20240716
  Serious: No
  Sender: FDA-Public Use
  Company Number: US-TEVA-VS-3153802

PATIENT
  Age: 49 Year
  Sex: Female

DRUGS (2)
  1. UZEDY [Suspect]
     Active Substance: RISPERIDONE
     Indication: Schizophrenia
     Dosage: STRENGTH:100/0.28 MG/ML
     Route: 065
     Dates: start: 20240115
  2. PROZAC [Concomitant]
     Active Substance: FLUOXETINE HYDROCHLORIDE

REACTIONS (5)
  - Pain in extremity [Unknown]
  - Fatigue [Unknown]
  - Micturition disorder [Unknown]
  - Increased appetite [Unknown]
  - Weight increased [Unknown]
